FAERS Safety Report 17802591 (Version 1)
Quarter: 2020Q2

REPORT INFORMATION
  Report Type: Spontaneous
  Country: MY (occurrence: MY)
  Receive Date: 20200519
  Receipt Date: 20200519
  Transmission Date: 20200714
  Serious: Yes (Death, Hospitalization)
  Sender: FDA-Public Use
  Company Number: MY-UNICHEM PHARMACEUTICALS (USA) INC-UCM202005-000607

PATIENT
  Age: 96 Year
  Sex: Male

DRUGS (4)
  1. AMLODIPINE [Suspect]
     Active Substance: AMLODIPINE BESYLATE
     Indication: ACCIDENTAL OVERDOSE
     Dosage: UNSURE AMOUNT OF T AMLODIPINE 10 MG
  2. BISOPROLOL FUMARATE. [Suspect]
     Active Substance: BISOPROLOL FUMARATE
     Indication: ACCIDENTAL OVERDOSE
     Dosage: UNSURE AMOUNT OF T BISOPROLOL 1.25 MG
  3. AMLODIPINE [Suspect]
     Active Substance: AMLODIPINE BESYLATE
     Indication: HYPERTENSION
  4. BISOPROLOL FUMARATE. [Suspect]
     Active Substance: BISOPROLOL FUMARATE
     Indication: HYPERTENSION

REACTIONS (10)
  - Coma scale abnormal [Fatal]
  - Hallucination, auditory [Fatal]
  - Sinus bradycardia [Fatal]
  - Hallucination, visual [Fatal]
  - Accidental overdose [Fatal]
  - Dizziness [Fatal]
  - Defect conduction intraventricular [Fatal]
  - Confusional state [Fatal]
  - Persecutory delusion [Fatal]
  - Blood pressure decreased [Fatal]
